FAERS Safety Report 15592729 (Version 1)
Quarter: 2018Q4

REPORT INFORMATION
  Report Type: Report from Study
  Country: US (occurrence: US)
  Receive Date: 20181107
  Receipt Date: 20181107
  Transmission Date: 20190205
  Serious: Yes (Hospitalization)
  Sender: FDA-Public Use
  Company Number: US-EISAI MEDICAL RESEARCH-EC-2018-041229

PATIENT
  Age: 70 Year
  Sex: Male

DRUGS (5)
  1. KOMBIGLYZE XR [Concomitant]
     Active Substance: METFORMIN HYDROCHLORIDE\SAXAGLIPTIN HYDROCHLORIDE
  2. LENVIMA [Suspect]
     Active Substance: LENVATINIB
     Indication: THYROID CANCER
     Route: 048
     Dates: start: 20180605, end: 20180622
  3. LENVIMA [Suspect]
     Active Substance: LENVATINIB
     Route: 048
     Dates: start: 201810, end: 201811
  4. NIFEDICAL XL [Concomitant]
     Active Substance: NIFEDIPINE
  5. LENVIMA [Suspect]
     Active Substance: LENVATINIB
     Route: 048
     Dates: start: 2018, end: 20181003

REACTIONS (19)
  - Thrombosis [Not Recovered/Not Resolved]
  - Hypophagia [Recovered/Resolved]
  - Tooth injury [Not Recovered/Not Resolved]
  - Wound haemorrhage [Recovering/Resolving]
  - Weight decreased [Recovered/Resolved]
  - Aggression [Not Recovered/Not Resolved]
  - Haemoptysis [Recovered/Resolved]
  - Aortic stenosis [Unknown]
  - Blood pressure diastolic increased [Not Recovered/Not Resolved]
  - International normalised ratio increased [Not Recovered/Not Resolved]
  - Cardiac failure congestive [Unknown]
  - Diarrhoea [Recovered/Resolved]
  - Thyroid function test abnormal [Recovered/Resolved]
  - Post procedural swelling [Not Recovered/Not Resolved]
  - Intestinal perforation [Not Recovered/Not Resolved]
  - Haematoma [Not Recovered/Not Resolved]
  - Irritability [Not Recovered/Not Resolved]
  - Hypotension [Recovered/Resolved]
  - Wound [Recovered/Resolved]

NARRATIVE: CASE EVENT DATE: 2018
